FAERS Safety Report 8457052-1 (Version None)
Quarter: 2012Q2

REPORT INFORMATION
  Report Type: 
  Country: None (occurrence: None)
  Receive Date: 20120615
  Receipt Date: 20120607
  Transmission Date: 20120825
  Serious: Yes (Other)
  Sender: FDA-Public Use
  Company Number: AUR-APL-2012-01278

PATIENT
  Age: 75 Year
  Sex: Male
  Weight: 79.36 kg

DRUGS (18)
  1. METOPROLOL TARTRATE [Suspect]
     Indication: HYPERTENSION
     Dosage: (25 MG) (12.5 MG)
     Dates: end: 20120101
  2. METOPROLOL TARTRATE [Suspect]
     Indication: ARRHYTHMIA
     Dosage: (25 MG) (12.5 MG)
     Dates: end: 20120101
  3. METOPROLOL TARTRATE [Suspect]
     Indication: HEART RATE INCREASED
     Dosage: (25 MG) (12.5 MG)
     Dates: end: 20120101
  4. METOPROLOL TARTRATE [Suspect]
     Indication: ATRIAL FIBRILLATION
     Dosage: (25 MG) (12.5 MG)
     Dates: end: 20120101
  5. METOPROLOL TARTRATE [Suspect]
     Indication: HYPERTENSION
     Dosage: (25 MG) (12.5 MG)
     Dates: start: 20110204
  6. METOPROLOL TARTRATE [Suspect]
     Indication: ARRHYTHMIA
     Dosage: (25 MG) (12.5 MG)
     Dates: start: 20110204
  7. METOPROLOL TARTRATE [Suspect]
     Indication: HEART RATE INCREASED
     Dosage: (25 MG) (12.5 MG)
     Dates: start: 20110204
  8. METOPROLOL TARTRATE [Suspect]
     Indication: ATRIAL FIBRILLATION
     Dosage: (25 MG) (12.5 MG)
     Dates: start: 20110204
  9. AMLODIPINE [Suspect]
     Indication: PRODUCT USED FOR UNKNOWN INDICATION
     Dosage: (10 MG, 1 D)
     Dates: start: 20110204
  10. AMLODIPINE [Suspect]
     Indication: PRODUCT USED FOR UNKNOWN INDICATION
     Dosage: (10 MG, 1 D)
     Dates: end: 20120101
  11. WARFARIN SODIUM [Suspect]
     Indication: ANTICOAGULANT THERAPY
     Dosage: (5 MG, 1 D)
     Dates: start: 20110204
  12. WARFARIN SODIUM [Suspect]
     Indication: ANTICOAGULANT THERAPY
     Dosage: (5 MG, 1 D)
     Dates: end: 20120101
  13. TIKOSYN [Suspect]
     Indication: HEART RATE INCREASED
     Dosage: 1000 MCG (500 MCG, 2 IN 1 D)
     Dates: start: 20120213
  14. TIKOSYN [Suspect]
     Indication: ATRIAL FIBRILLATION
     Dosage: 1000 MCG (500 MCG, 2 IN 1 D)
     Dates: start: 20120213
  15. TIKOSYN [Suspect]
     Indication: HEART RATE INCREASED
     Dosage: 1000 MCG (500 MCG, 2 IN 1 D)
     Dates: start: 20120101, end: 20120101
  16. TIKOSYN [Suspect]
     Indication: ATRIAL FIBRILLATION
     Dosage: 1000 MCG (500 MCG, 2 IN 1 D)
     Dates: start: 20120101, end: 20120101
  17. ACETYLSALICYLIC ACID SRT [Suspect]
     Indication: CARDIAC DISORDER
     Dosage: (81 MG, 1 D)  (81 MG)
     Dates: start: 20120213
  18. ACETYLSALICYLIC ACID SRT [Suspect]
     Indication: ANTICOAGULANT THERAPY
     Dosage: (81 MG, 1 D)  (81 MG)
     Dates: start: 20120213

REACTIONS (9)
  - DIZZINESS [None]
  - PAIN IN EXTREMITY [None]
  - MUSCULOSKELETAL PAIN [None]
  - MENTAL DISORDER [None]
  - ASTHENIA [None]
  - MUSCLE SWELLING [None]
  - BREAST PAIN [None]
  - DYSPNOEA [None]
  - INSOMNIA [None]
